FAERS Safety Report 17161017 (Version 1)
Quarter: 2019Q4

REPORT INFORMATION
  Report Type: Report from Study
  Country: US (occurrence: US)
  Receive Date: 20191216
  Receipt Date: 20191216
  Transmission Date: 20200122
  Serious: Yes (Hospitalization)
  Sender: FDA-Public Use
  Company Number: US-GILEAD-2019-0442940

PATIENT
  Sex: Female

DRUGS (1)
  1. AZTREONAM LYSINE [Suspect]
     Active Substance: AZTREONAM LYSINE
     Indication: CYSTIC FIBROSIS
     Dosage: ONE VIAL (75 MG) FOR 28 DAYS ON AND 28 DAYS OFF, REPEAT.
     Route: 055

REACTIONS (1)
  - Cystic fibrosis respiratory infection suppression [Unknown]
